FAERS Safety Report 10587134 (Version 2)
Quarter: 2015Q1

REPORT INFORMATION
  Report Type: Spontaneous
  Country: US (occurrence: US)
  Receive Date: 20141117
  Receipt Date: 20150115
  Transmission Date: 20150720
  Serious: Yes (Other)
  Sender: FDA-Public Use
  Company Number: US-SHIRE-US201407765

PATIENT
  Age: 13 Year
  Sex: Female

DRUGS (1)
  1. FIRAZYR [Suspect]
     Active Substance: ICATIBANT ACETATE
     Indication: HEREDITARY ANGIOEDEMA
     Dosage: 30 MG, AS REQ^D (EVERY 6 HOURS, MAXIMUM OF 3)
     Route: 058
     Dates: start: 20141020, end: 20141104

REACTIONS (4)
  - Paraesthesia [Recovered/Resolved]
  - Product use issue [Recovered/Resolved]
  - Hypoaesthesia [Recovered/Resolved]
  - Pharyngeal hypoaesthesia [Recovered/Resolved]

NARRATIVE: CASE EVENT DATE: 20141020
